FAERS Safety Report 8776919 (Version 2)
Quarter: 2013Q1

REPORT INFORMATION
  Report Type: Report from Study
  Country: JP (occurrence: JP)
  Receive Date: 20120911
  Receipt Date: 20130121
  Transmission Date: 20140127
  Serious: Yes (Hospitalization)
  Sender: FDA-Public Use
  Company Number: JP-SHIRE-ALL1-2012-04242

PATIENT
  Age: 78 Year
  Sex: Female

DRUGS (15)
  1. 405 (LANTHANUM CARBONATE) [Suspect]
     Indication: HYPERPHOSPHATAEMIA
     Dosage: 750 MG, OTHER(IMMEDIATELY AFTER MEALS)
     Route: 048
     Dates: start: 20090627
  2. CALTAN [Concomitant]
     Indication: HYPERPHOSPHATAEMIA
     Dosage: 6 DF, UNKNOWN
     Route: 048
     Dates: start: 20061205, end: 20110802
  3. CALTAN [Concomitant]
     Dosage: 3 DF, UNKNOWN
     Route: 048
     Dates: start: 20110803
  4. RENAGEL                            /01459902/ [Concomitant]
     Indication: PRODUCT USED FOR UNKNOWN INDICATION
     Dosage: 6 DF, UNKNOWN
     Route: 048
     Dates: start: 20070517, end: 20091001
  5. OXAROL [Concomitant]
     Indication: PRODUCT USED FOR UNKNOWN INDICATION
     Dosage: 15.0 ?G, 1X/WEEK
     Route: 042
     Dates: start: 20090430, end: 20091001
  6. OXAROL [Concomitant]
     Dosage: 2.5 ?G, 1X/WEEK
     Route: 042
     Dates: start: 20091003, end: 20091124
  7. ALFAROL [Concomitant]
     Indication: PRODUCT USED FOR UNKNOWN INDICATION
     Dosage: 0.25 ?G, UNKNOWN
     Route: 048
     Dates: start: 20091124, end: 20110526
  8. LASIX                              /00032601/ [Concomitant]
     Indication: PRODUCT USED FOR UNKNOWN INDICATION
     Dosage: 20 MG, UNKNOWN
     Route: 048
  9. METLIGINE [Concomitant]
     Indication: PROPHYLAXIS
     Dosage: UNK, UNKNOWN
     Route: 048
  10. FERROMIA                           /00023520/ [Concomitant]
     Indication: PRODUCT USED FOR UNKNOWN INDICATION
     Dosage: UNK, UNKNOWN
     Route: 048
  11. PLETAAL [Concomitant]
     Indication: PROPHYLAXIS
     Dosage: 100 MG, UNKNOWN
     Route: 048
  12. CALCIUM CARBONATE [Concomitant]
     Indication: PRODUCT USED FOR UNKNOWN INDICATION
     Dosage: 3000 MG, DAILY
     Route: 048
     Dates: start: 20061205, end: 20110802
  13. SEVELAMER [Concomitant]
     Indication: PRODUCT USED FOR UNKNOWN INDICATION
     Dosage: 1500 MG, DAILY
     Route: 048
     Dates: start: 20070517, end: 20091001
  14. SEVELAMER [Concomitant]
     Dosage: 750 MG, DAILY
     Route: 048
     Dates: start: 20110803
  15. PITAVASTATIN CALCIUM [Concomitant]
     Indication: HYPERLIPIDAEMIA
     Dosage: UNK UNK, 1X/DAY:QD
     Route: 065
     Dates: start: 20100527

REACTIONS (1)
  - Bile duct stone [Recovered/Resolved]
